FAERS Safety Report 13887842 (Version 2)
Quarter: 2017Q4

REPORT INFORMATION
  Report Type: Spontaneous
  Country: JP (occurrence: JP)
  Receive Date: 20170821
  Receipt Date: 20171017
  Transmission Date: 20180320
  Serious: Yes (Death)
  Sender: FDA-Public Use
  Company Number: JP-EISAI MEDICAL RESEARCH-EC-2016-014182

PATIENT
  Age: 70 Year
  Sex: Male

DRUGS (8)
  1. THYRADIN S [Concomitant]
     Active Substance: LEVOTHYROXINE SODIUM
     Indication: HYPOTHYROIDISM
     Route: 048
     Dates: start: 19900405
  2. CALONAL [Concomitant]
     Active Substance: ACETAMINOPHEN
     Indication: CHEST PAIN
     Route: 048
     Dates: start: 20160109
  3. LENVIMA [Suspect]
     Active Substance: LENVATINIB
     Route: 048
     Dates: start: 20160113, end: 20160125
  4. LENVIMA [Suspect]
     Active Substance: LENVATINIB
     Route: 048
     Dates: start: 20160126
  5. DIOVAN OD [Concomitant]
     Indication: HYPERTENSION
     Route: 048
     Dates: start: 20151216
  6. CALTAN OD [Concomitant]
     Indication: BLOOD PARATHYROID HORMONE DECREASED
     Route: 048
     Dates: start: 20160314
  7. LENVIMA [Suspect]
     Active Substance: LENVATINIB
     Indication: PAPILLARY THYROID CANCER
     Route: 048
     Dates: start: 20151216, end: 20160112
  8. ONEALFA [Concomitant]
     Active Substance: ALFACALCIDOL
     Indication: BLOOD PARATHYROID HORMONE DECREASED
     Route: 048
     Dates: start: 19971105

REACTIONS (5)
  - Palmar-plantar erythrodysaesthesia syndrome [Recovered/Resolved]
  - Stomatitis [Recovered/Resolved]
  - Cholecystitis [Recovered/Resolved]
  - Hypocalcaemia [Recovered/Resolved]
  - Weight decreased [Recovered/Resolved]

NARRATIVE: CASE EVENT DATE: 20160112
